FAERS Safety Report 8359221-8 (Version None)
Quarter: 2012Q2

REPORT INFORMATION
  Report Type: 
  Country: None (occurrence: None)
  Receive Date: 20120511
  Receipt Date: 20120501
  Transmission Date: 20120825
  Serious: Yes (Other)
  Sender: FDA-Public Use
  Company Number: US-2012-10506

PATIENT
  Age: 3 Year
  Sex: Female

DRUGS (2)
  1. BUSULFAN [Suspect]
     Indication: SURGERY
     Dosage: 75 MG/M2
  2. CEFAZOLIN [Suspect]
     Indication: PROPHYLAXIS

REACTIONS (3)
  - BONE MARROW FAILURE [None]
  - NEUTROPENIA [None]
  - MYELODYSPLASTIC SYNDROME [None]
